FAERS Safety Report 9468848 (Version 1)
Quarter: 2013Q3

REPORT INFORMATION
  Report Type: Spontaneous
  Country: US (occurrence: None)
  Receive Date: 20130816
  Receipt Date: 20130816
  Transmission Date: 20140515
  Serious: Yes (Other)
  Sender: FDA-Public Use
  Company Number: JPI-P-034365

PATIENT
  Age: 57 Year
  Sex: Female
  Weight: 58.97 kg

DRUGS (9)
  1. XYREM [Suspect]
     Indication: INSOMNIA
     Route: 048
     Dates: start: 20110804
  2. PANCREALIPASE [Concomitant]
  3. GABAPENTIN [Concomitant]
  4. VERAPAMIL [Concomitant]
  5. PROGESTERONE [Concomitant]
  6. OXYCODONE AND ACETAMINOPHEN [Concomitant]
  7. HALCION [Concomitant]
  8. CLONOPIN [Concomitant]
  9. OMEPRAZOLE [Concomitant]

REACTIONS (7)
  - Intervertebral disc degeneration [None]
  - Pancreatic insufficiency [None]
  - Neck pain [None]
  - Coeliac disease [None]
  - Gastrooesophageal reflux disease [None]
  - Neuropathy peripheral [None]
  - Back pain [None]
